FAERS Safety Report 8245395 (Version 2)
Quarter: 2012Q4

REPORT INFORMATION
  Report Type: Report from Study
  Country: US (occurrence: US)
  Receive Date: 20111115
  Receipt Date: 20121205
  Transmission Date: 20130627
  Serious: Yes (Hospitalization)
  Sender: FDA-Public Use
  Company Number: US-UCBSA-019002

PATIENT
  Age: 23 Year
  Sex: Male
  Weight: 52.6 kg

DRUGS (9)
  1. CIMZIA [Suspect]
     Indication: CROHN^S DISEASE
     Route: 058
     Dates: start: 20100128, end: 201010
  2. CIMZIA [Suspect]
     Indication: CROHN^S DISEASE
     Route: 058
     Dates: start: 20091231, end: 20091231
  3. CIMZIA [Suspect]
     Indication: CROHN^S DISEASE
     Route: 058
     Dates: start: 20091203, end: 20091217
  4. AMINOSALICYLATES [Concomitant]
     Indication: CROHN^S DISEASE
     Dates: start: 2001, end: 2004
  5. FLAGYL [Concomitant]
     Indication: CROHN^S DISEASE
     Dates: start: 2005, end: 200604
  6. PREDNISONE [Concomitant]
     Indication: CROHN^S DISEASE
     Dates: start: 2003, end: 200604
  7. PREDNISONE [Concomitant]
     Indication: CROHN^S DISEASE
     Dates: start: 20080828, end: 20100401
  8. BUDESONIDE [Concomitant]
     Indication: CROHN^S DISEASE
     Dates: start: 2005, end: 200604
  9. AZATHIOPRINE [Concomitant]
     Indication: CROHN^S DISEASE
     Dates: start: 20091001

REACTIONS (1)
  - Perirectal abscess [Recovered/Resolved with Sequelae]
